FAERS Safety Report 11449114 (Version 11)
Quarter: 2018Q4

REPORT INFORMATION
  Report Type: Report from Study
  Country: CA (occurrence: CA)
  Receive Date: 20150902
  Receipt Date: 20181113
  Transmission Date: 20190204
  Serious: Yes (Hospitalization, Other)
  Sender: FDA-Public Use
  Company Number: PHHY2015CA102056

PATIENT
  Sex: Female

DRUGS (4)
  1. ATORVASTATIN [Concomitant]
     Active Substance: ATORVASTATIN
     Indication: PRODUCT USED FOR UNKNOWN INDICATION
     Route: 065
  2. TASIGNA [Suspect]
     Active Substance: NILOTINIB
     Indication: CHRONIC MYELOID LEUKAEMIA
     Dosage: 300 MG, BID
     Route: 048
     Dates: start: 20150716
  3. RISEDRONATE [Concomitant]
     Active Substance: RISEDRONATE SODIUM
     Indication: PRODUCT USED FOR UNKNOWN INDICATION
     Route: 065
  4. CALCIUM [Concomitant]
     Active Substance: CALCIUM
     Indication: PRODUCT USED FOR UNKNOWN INDICATION
     Route: 065

REACTIONS (25)
  - Fuchs^ syndrome [Unknown]
  - Vertigo [Unknown]
  - Skin disorder [Unknown]
  - Muscle spasms [Unknown]
  - Rash [Unknown]
  - Fatigue [Unknown]
  - Renal cyst [Unknown]
  - Influenza [Unknown]
  - Abdominal pain upper [Recovering/Resolving]
  - Hair texture abnormal [Unknown]
  - Second primary malignancy [Unknown]
  - Hypertension [Unknown]
  - Asthenia [Unknown]
  - Nausea [Unknown]
  - Weight decreased [Recovering/Resolving]
  - Alopecia [Unknown]
  - Bowel movement irregularity [Unknown]
  - Myalgia [Unknown]
  - Headache [Unknown]
  - Pyrexia [Unknown]
  - Renal cancer [Unknown]
  - Anaemia [Unknown]
  - Scab [Unknown]
  - Constipation [Unknown]
  - Dizziness [Unknown]
